FAERS Safety Report 9717644 (Version 2)
Quarter: 2013Q4

REPORT INFORMATION
  Report Type: Spontaneous
  Country: US (occurrence: US)
  Receive Date: 20131127
  Receipt Date: 20131220
  Transmission Date: 20140711
  Serious: No
  Sender: FDA-Public Use
  Company Number: US-GILEAD-2013-0088419

PATIENT
  Age: 81 Year
  Sex: Female
  Weight: 75 kg

DRUGS (2)
  1. RANEXA [Suspect]
     Indication: ANGINA PECTORIS
     Dosage: 1000 MG, BID
     Route: 048
     Dates: start: 20130522, end: 20130626
  2. RANEXA [Suspect]
     Dosage: 500 MG, BID
     Route: 048
     Dates: start: 20130131, end: 20130522

REACTIONS (3)
  - Hot flush [Recovered/Resolved]
  - Malaise [Recovered/Resolved]
  - Nausea [Recovered/Resolved]
